FAERS Safety Report 6354005-4 (Version None)
Quarter: 2009Q3

REPORT INFORMATION
  Report Type: 
  Country: None (occurrence: None)
  Receive Date: 20090909
  Receipt Date: 20090825
  Transmission Date: 20100115
  Serious: Yes (Hospitalization)
  Sender: FDA-Public Use
  Company Number: 2008BM000045

PATIENT
  Age: 21 Year
  Sex: Male
  Weight: 25 kg

DRUGS (4)
  1. NAGLAZYME          (GALSULFASE) SOLUTION [Suspect]
     Indication: MUCOPOLYSACCHARIDOSIS VI
     Dosage: 25 MG;QW;IVDRP
     Route: 042
     Dates: start: 20050720, end: 20080225
  2. FUROSEMIDE [Concomitant]
  3. CAPTOPRIL [Concomitant]
  4. CLAVULANATE POTASSIUM [Concomitant]

REACTIONS (3)
  - DYSPNOEA AT REST [None]
  - OEDEMA PERIPHERAL [None]
  - PNEUMONIA [None]
